FAERS Safety Report 15627427 (Version 1)
Quarter: 2018Q4

REPORT INFORMATION
  Report Type: Spontaneous
  Country: US (occurrence: US)
  Receive Date: 20181116
  Receipt Date: 20181116
  Transmission Date: 20190205
  Serious: No
  Sender: FDA-Public Use
  Company Number: US-MYLANLABS-2018M1086304

PATIENT
  Sex: Female

DRUGS (1)
  1. ECONTRA EZ [Suspect]
     Active Substance: LEVONORGESTREL
     Indication: PRODUCT USED FOR UNKNOWN INDICATION
     Dosage: UNK
     Dates: start: 20181029

REACTIONS (4)
  - Oropharyngeal pain [Unknown]
  - Pyrexia [Unknown]
  - Malaise [Unknown]
  - Menstruation delayed [Unknown]
